FAERS Safety Report 8247136-5 (Version None)
Quarter: 2012Q1

REPORT INFORMATION
  Report Type: 
  Country: None (occurrence: None)
  Receive Date: 20120330
  Receipt Date: 20120322
  Transmission Date: 20120608
  Serious: Yes (Hospitalization)
  Sender: FDA-Public Use
  Company Number: IT-JNJFOC-20120311805

PATIENT
  Sex: Male

DRUGS (3)
  1. ESCITALOPRAM [Concomitant]
     Indication: ILL-DEFINED DISORDER
     Route: 048
  2. INVEGA [Suspect]
     Route: 048
  3. INVEGA [Suspect]
     Indication: PRODUCT USED FOR UNKNOWN INDICATION
     Route: 048
     Dates: start: 20111123, end: 20111123

REACTIONS (2)
  - TACHYCARDIA [None]
  - MEDICATION ERROR [None]
